FAERS Safety Report 16307034 (Version 2)
Quarter: 2019Q2

REPORT INFORMATION
  Report Type: Spontaneous
  Country: HU (occurrence: HU)
  Receive Date: 20190513
  Receipt Date: 20190604
  Transmission Date: 20190711
  Serious: Yes (Death, Hospitalization, Other)
  Sender: FDA-Public Use
  Company Number: HU-009507513-1905HUN003467

PATIENT
  Age: 84 Year
  Sex: Female

DRUGS (1)
  1. KEYTRUDA [Suspect]
     Active Substance: PEMBROLIZUMAB
     Indication: MALIGNANT MELANOMA
     Dosage: THE FIRST CYCLE
     Dates: start: 20190325, end: 20190325

REACTIONS (3)
  - Hepatic enzyme increased [Fatal]
  - Malignant neoplasm progression [Fatal]
  - Hyponatraemia [Unknown]

NARRATIVE: CASE EVENT DATE: 2019
